FAERS Safety Report 5535682-4 (Version None)
Quarter: 2007Q4

REPORT INFORMATION
  Report Type: 
  Country: None (occurrence: None)
  Receive Date: 20071204
  Receipt Date: 20071204
  Transmission Date: 20080405
  Serious: Yes (Death)
  Sender: FDA-Public Use
  Company Number: None

PATIENT
  Sex: Male
  Weight: 107.3 kg

DRUGS (2)
  1. CASODEX [Suspect]
     Dosage: 2550 MG
  2. ZOLADEX [Suspect]
     Dosage: 10.8 MG

REACTIONS (1)
  - COMPLETED SUICIDE [None]
